FAERS Safety Report 7112431-X (Version None)
Quarter: 2010Q4

REPORT INFORMATION
  Report Type: 
  Country: None (occurrence: None)
  Receive Date: 20101119
  Receipt Date: 20101109
  Transmission Date: 20110411
  Serious: Yes (Other)
  Sender: FDA-Public Use
  Company Number: CA-JNJFOC-20101104283

PATIENT
  Sex: Female
  Weight: 47.9 kg

DRUGS (2)
  1. REMICADE [Suspect]
     Indication: CROHN'S DISEASE
     Dosage: DOSE: 100 MG/VIAL
     Route: 042
  2. REMICADE [Suspect]
     Route: 042

REACTIONS (2)
  - ADHESION [None]
  - ENTERITIS [None]
